FAERS Safety Report 8450660-3 (Version None)
Quarter: 2012Q2

REPORT INFORMATION
  Report Type: 
  Country: None (occurrence: None)
  Receive Date: 20120620
  Receipt Date: 20120619
  Transmission Date: 20120825
  Serious: Yes (Hospitalization, Other)
  Sender: FDA-Public Use
  Company Number: CN-PFIZER INC-2012071219

PATIENT
  Age: 76 Year
  Sex: Male

DRUGS (4)
  1. CORDARONE [Suspect]
     Indication: ARRHYTHMIA
     Dosage: 200 MG, 1X/DAY
     Route: 048
     Dates: start: 20060101, end: 20120306
  2. ASPIRIN [Concomitant]
     Dosage: UNK
  3. DIAZEPAM [Concomitant]
     Dosage: UNK
  4. CORDARONE [Suspect]
     Dosage: 100 MG, 1X/DAY
     Route: 048
     Dates: start: 20120307, end: 20120301

REACTIONS (7)
  - BLOOD THYROID STIMULATING HORMONE INCREASED [None]
  - LUNG DISORDER [None]
  - PROTEIN TOTAL DECREASED [None]
  - THYROXINE DECREASED [None]
  - CARCINOEMBRYONIC ANTIGEN INCREASED [None]
  - COUGH [None]
  - GLOBULINS DECREASED [None]
